FAERS Safety Report 7327043-2 (Version None)
Quarter: 2011Q1

REPORT INFORMATION
  Report Type: 
  Country: None (occurrence: None)
  Receive Date: 20110222
  Receipt Date: 20110211
  Transmission Date: 20110831
  Serious: Yes (Death)
  Sender: FDA-Public Use
  Company Number: DSA_44949_2011

PATIENT
  Sex: Female
  Weight: 60.3284 kg

DRUGS (22)
  1. XENAZINE [Suspect]
     Indication: CHOREA
     Dosage: 25 MG TID ORAL, 25 MG, TWO AND 1/2 TABLETS DAILY ORAL
     Route: 048
     Dates: start: 20090610
  2. XENAZINE [Suspect]
     Indication: CHOREA
     Dosage: 25 MG TID ORAL, 25 MG, TWO AND 1/2 TABLETS DAILY ORAL
     Route: 048
     Dates: start: 20090325, end: 20090609
  3. SINEMET [Concomitant]
  4. NORVASC [Concomitant]
  5. CALCIUM 600 + D [Concomitant]
  6. MIRALAX [Concomitant]
  7. REQUIP [Concomitant]
  8. LEXAPRO [Concomitant]
  9. BUSPAR [Concomitant]
  10. PILOCARPINE [Concomitant]
  11. DEPAKOTE [Concomitant]
  12. NITROGLYCERIN [Concomitant]
  13. LYRICA [Concomitant]
  14. ASPIRIN [Concomitant]
  15. EXELON [Concomitant]
  16. DOCUSATE SODIUM [Concomitant]
  17. FISH OIL [Concomitant]
  18. MULTI-VITAMINS [Concomitant]
  19. LEVOTHYROXINE SODIUM [Concomitant]
  20. IMDUR [Concomitant]
  21. OXYBUTYNIN [Concomitant]
  22. ULTRAM [Concomitant]

REACTIONS (1)
  - DEATH [None]
